FAERS Safety Report 7623807-6 (Version None)
Quarter: 2011Q3

REPORT INFORMATION
  Report Type: 
  Country: None (occurrence: None)
  Receive Date: 20110720
  Receipt Date: 20110715
  Transmission Date: 20111222
  Serious: Yes (Other)
  Sender: FDA-Public Use
  Company Number: US-GENENTECH-320627

PATIENT
  Sex: Female
  Weight: 73.923 kg

DRUGS (4)
  1. XOLAIR [Suspect]
     Indication: ASTHMA
     Dosage: 1.2 ML, Q4W
     Route: 058
     Dates: start: 20110222
  2. XOLAIR [Suspect]
     Dosage: 1.2 ML, Q4W
     Route: 058
     Dates: start: 20110322, end: 20110418
  3. DULERA ORAL INHALATION [Concomitant]
     Indication: PRODUCT USED FOR UNKNOWN INDICATION
     Dosage: 2 PUFF, BID
  4. NASACORT AQ [Concomitant]
     Indication: PRODUCT USED FOR UNKNOWN INDICATION

REACTIONS (2)
  - JOINT STIFFNESS [None]
  - ARTHRALGIA [None]
